FAERS Safety Report 25285569 (Version 1)
Quarter: 2025Q2

REPORT INFORMATION
  Report Type: Spontaneous
  Country: US (occurrence: US)
  Receive Date: 20250509
  Receipt Date: 20250509
  Transmission Date: 20250717
  Serious: Yes (Hospitalization)
  Sender: CSL BEHRING
  Company Number: US-BEH-2025203941

PATIENT
  Sex: Female

DRUGS (8)
  1. RIASTAP [Suspect]
     Active Substance: FIBRINOGEN HUMAN
     Indication: Haemophilia
     Dosage: 2300 MG, BIW
     Route: 042
     Dates: start: 202001
  2. RIASTAP [Suspect]
     Active Substance: FIBRINOGEN HUMAN
     Indication: Coagulopathy
     Route: 042
     Dates: start: 202001
  3. HEPARIN [Concomitant]
     Active Substance: HEPARIN SODIUM
  4. STERILE WATER [Concomitant]
     Active Substance: WATER
  5. ENOXAPARIN SODIUM [Concomitant]
     Active Substance: ENOXAPARIN SODIUM
  6. SODIUM CHLORIDE [Concomitant]
     Active Substance: SODIUM CHLORIDE
  7. SODIUM CHLORIDE [Concomitant]
     Active Substance: SODIUM CHLORIDE
  8. LIDOCAINE\PRILOCAINE [Concomitant]
     Active Substance: LIDOCAINE\PRILOCAINE

REACTIONS (2)
  - Mammoplasty [Unknown]
  - Post procedural haemorrhage [Unknown]
